FAERS Safety Report 10466134 (Version 2)
Quarter: 2014Q3

REPORT INFORMATION
  Report Type: Spontaneous
  Country: IT (occurrence: IT)
  Receive Date: 20140922
  Receipt Date: 20140922
  Transmission Date: 20150326
  Serious: Yes (Hospitalization)
  Sender: FDA-Public Use
  Company Number: IT-AUROBINDO-AUR-APL-2014-06674

PATIENT
  Age: 64 Year
  Sex: Male

DRUGS (1)
  1. AMOXICILLINA TABLETS 1G [Suspect]
     Active Substance: AMOXICILLIN
     Indication: TOOTHACHE
     Dosage: 1 G, TOTAL
     Route: 048
     Dates: start: 20140226, end: 20140226

REACTIONS (1)
  - Tongue oedema [Recovering/Resolving]

NARRATIVE: CASE EVENT DATE: 20140226
